FAERS Safety Report 21336635 (Version 1)
Quarter: 2022Q3

REPORT INFORMATION
  Report Type: Report from Study
  Country: TR (occurrence: TR)
  Receive Date: 20220915
  Receipt Date: 20220915
  Transmission Date: 20221027
  Serious: Yes (Hospitalization, Other)
  Sender: FDA-Public Use
  Company Number: TR-NOVARTISPH-NVSC2022TR206150

PATIENT
  Age: 13 Year
  Sex: Male

DRUGS (1)
  1. OMNITROPE [Suspect]
     Active Substance: SOMATROPIN
     Indication: Product used for unknown indication
     Dosage: 0.6 MG
     Route: 058
     Dates: start: 20220902, end: 20220908

REACTIONS (3)
  - Ill-defined disorder [Recovered/Resolved]
  - Depressed level of consciousness [Unknown]
  - Headache [Unknown]

NARRATIVE: CASE EVENT DATE: 20220909
